FAERS Safety Report 21086886 (Version 2)
Quarter: 2022Q3

REPORT INFORMATION
  Report Type: Spontaneous
  Country: US (occurrence: US)
  Receive Date: 20220715
  Receipt Date: 20220811
  Transmission Date: 20221027
  Serious: Yes (Other)
  Sender: FDA-Public Use
  Company Number: US-ALK-ABELLO A/S-2022AA002171

PATIENT

DRUGS (58)
  1. PLANTAGO LANCEOLATA POLLEN [Suspect]
     Active Substance: PLANTAGO LANCEOLATA POLLEN
     Indication: Skin test
     Dosage: UNK
     Route: 023
     Dates: start: 20220323
  2. PLANTAGO LANCEOLATA POLLEN [Suspect]
     Active Substance: PLANTAGO LANCEOLATA POLLEN
     Dosage: 1:20 WEIGHT/VOLUME
     Route: 003
     Dates: start: 20220323
  3. BETULA PENDULA POLLEN [Suspect]
     Active Substance: BETULA PENDULA POLLEN
     Indication: Skin test
     Dosage: UNK
     Route: 023
     Dates: start: 20220323
  4. BETULA PENDULA POLLEN [Suspect]
     Active Substance: BETULA PENDULA POLLEN
     Dosage: 1:20 WEIGHT/VOLUME
     Route: 003
     Dates: start: 20220323
  5. POA PRATENSIS POLLEN [Suspect]
     Active Substance: POA PRATENSIS POLLEN
     Indication: Skin test
     Dosage: 100.000 BIOEQUIVALENT ALLERGY UNITS/ML
     Route: 023
     Dates: start: 20220323
  6. POA PRATENSIS POLLEN [Suspect]
     Active Substance: POA PRATENSIS POLLEN
     Dosage: 100,000 BAU/ML
     Route: 003
     Dates: start: 20220323
  7. AMBROSIA ARTEMISIIFOLIA POLLEN\AMBROSIA TRIFIDA POLLEN [Suspect]
     Active Substance: AMBROSIA ARTEMISIIFOLIA POLLEN\AMBROSIA TRIFIDA POLLEN
     Indication: Skin test
     Dosage: UNK
     Route: 023
     Dates: start: 20220323
  8. AMBROSIA ARTEMISIIFOLIA POLLEN\AMBROSIA TRIFIDA POLLEN [Suspect]
     Active Substance: AMBROSIA ARTEMISIIFOLIA POLLEN\AMBROSIA TRIFIDA POLLEN
     Dosage: 1:20 WEIGHT/VOLUME
     Route: 003
     Dates: start: 20220323
  9. ALTERNARIA ALTERNATA [Suspect]
     Active Substance: ALTERNARIA ALTERNATA
     Indication: Skin test
     Dosage: UNK
     Route: 023
     Dates: start: 20220323
  10. HISTAMINE PHOSPHATE [Suspect]
     Active Substance: HISTAMINE PHOSPHATE
     Indication: Skin test
     Dosage: UNK
     Route: 023
     Dates: start: 20220323
  11. HISTAMINE PHOSPHATE [Suspect]
     Active Substance: HISTAMINE PHOSPHATE
     Indication: Skin test
     Dosage: PERCUTANEOUS
     Dates: start: 20220323
  12. FRAXINUS AMERICANA POLLEN [Suspect]
     Active Substance: FRAXINUS AMERICANA POLLEN
     Indication: Skin test
     Dosage: UNK
     Route: 023
     Dates: start: 20220323
  13. FRAXINUS AMERICANA POLLEN [Suspect]
     Active Substance: FRAXINUS AMERICANA POLLEN
     Dosage: 1:20 WEIGHT/VOLUME
     Route: 003
     Dates: start: 20220323
  14. ULMUS AMERICANA POLLEN [Suspect]
     Active Substance: ULMUS AMERICANA POLLEN
     Indication: Skin test
     Dosage: UNK
     Route: 023
     Dates: start: 20220323
  15. ULMUS AMERICANA POLLEN [Suspect]
     Active Substance: ULMUS AMERICANA POLLEN
     Dosage: 1:20 WEIGHT/VOLUME
     Route: 003
     Dates: start: 20220323
  16. CARYA OVATA POLLEN [Suspect]
     Active Substance: CARYA OVATA POLLEN
     Indication: Skin test
     Dosage: UNK
     Route: 023
     Dates: start: 20220323
  17. CARYA OVATA POLLEN [Suspect]
     Active Substance: CARYA OVATA POLLEN
     Dosage: 1:20 WEIGHT/VOLUME
     Route: 003
     Dates: start: 20220323
  18. ACER SACCHARUM POLLEN [Suspect]
     Active Substance: ACER SACCHARUM POLLEN
     Indication: Skin test
     Dosage: UNK
     Route: 023
     Dates: start: 20220323
  19. ACER SACCHARUM POLLEN [Suspect]
     Active Substance: ACER SACCHARUM POLLEN
     Dosage: 1:20 WEIGHT/VOLUME
     Route: 003
     Dates: start: 20220323
  20. QUERCUS ALBA POLLEN [Suspect]
     Active Substance: QUERCUS ALBA POLLEN
     Indication: Skin test
     Dosage: UNK
     Route: 023
     Dates: start: 20220323
  21. QUERCUS ALBA POLLEN [Suspect]
     Active Substance: QUERCUS ALBA POLLEN
     Dosage: 1:20 WEIGHT/VOLUME
     Route: 003
     Dates: start: 20220323
  22. POPULUS ALBA POLLEN [Suspect]
     Active Substance: POPULUS ALBA POLLEN
     Indication: Skin test
     Dosage: UNK
     Route: 023
     Dates: start: 20220323
  23. POPULUS ALBA POLLEN [Suspect]
     Active Substance: POPULUS ALBA POLLEN
     Dosage: 1:20 WEIGHT/VOLUME
     Route: 003
     Dates: start: 20220323
  24. SALIX NIGRA POLLEN [Suspect]
     Active Substance: SALIX NIGRA POLLEN
     Indication: Skin test
     Dosage: UNK
     Route: 023
     Dates: start: 20220323
  25. SALIX NIGRA POLLEN [Suspect]
     Active Substance: SALIX NIGRA POLLEN
     Dosage: 1:20 WEIGHT/VOLUME
     Route: 003
     Dates: start: 20220323
  26. DACTYLIS GLOMERATA POLLEN [Suspect]
     Active Substance: DACTYLIS GLOMERATA POLLEN
     Indication: Skin test
     Dosage: UNK
     Route: 023
     Dates: start: 20220323
  27. DACTYLIS GLOMERATA POLLEN [Suspect]
     Active Substance: DACTYLIS GLOMERATA POLLEN
     Dosage: 100,000 BAU/ML
     Route: 003
     Dates: start: 20220323
  28. ALLERGENIC EXTRACT- REDTOP AGROSTIS ALBA [Suspect]
     Active Substance: AGROSTIS GIGANTEA POLLEN
     Indication: Skin test
     Dosage: UNK
     Route: 023
     Dates: start: 20220323
  29. ALLERGENIC EXTRACT- REDTOP AGROSTIS ALBA [Suspect]
     Active Substance: AGROSTIS GIGANTEA POLLEN
     Dosage: 100,000 BAU/ML
     Route: 003
     Dates: start: 20220323
  30. PHLEUM PRATENSE POLLEN [Suspect]
     Active Substance: PHLEUM PRATENSE POLLEN
     Indication: Skin test
     Dosage: UNK
     Route: 023
     Dates: start: 20220323
  31. PHLEUM PRATENSE POLLEN [Suspect]
     Active Substance: PHLEUM PRATENSE POLLEN
     Dosage: 100,000 BAU/ML
     Route: 003
     Dates: start: 20220323
  32. XANTHIUM STRUMARIUM POLLEN [Suspect]
     Active Substance: XANTHIUM STRUMARIUM POLLEN
     Indication: Skin test
     Dosage: UNK
     Route: 023
     Dates: start: 20220323
  33. XANTHIUM STRUMARIUM POLLEN [Suspect]
     Active Substance: XANTHIUM STRUMARIUM POLLEN
     Dosage: 1:20 WEIGHT/VOLUME
     Route: 003
     Dates: start: 20220323
  34. CHENOPODIUM ALBUM POLLEN [Suspect]
     Active Substance: CHENOPODIUM ALBUM POLLEN
     Indication: Skin test
     Dosage: UNK
     Route: 023
     Dates: start: 20220323
  35. CHENOPODIUM ALBUM POLLEN [Suspect]
     Active Substance: CHENOPODIUM ALBUM POLLEN
     Dosage: 1:20 WEIGHT/VOLUME, PERCUTANEOUS
     Route: 003
     Dates: start: 20220323
  36. IVA ANNUA POLLEN [Suspect]
     Active Substance: IVA ANNUA POLLEN
     Indication: Skin test
     Dosage: UNK
     Route: 023
     Dates: start: 20220323
  37. IVA ANNUA POLLEN [Suspect]
     Active Substance: IVA ANNUA POLLEN
     Dosage: 1:20 WEIGHT/VOLUME, PERCUTANEOUS
     Route: 003
     Dates: start: 20220323
  38. DERMATOPHAGOIDES FARINAE [Suspect]
     Active Substance: DERMATOPHAGOIDES FARINAE
     Indication: Skin test
     Dosage: UNK
     Route: 023
     Dates: start: 20220323
  39. DERMATOPHAGOIDES FARINAE [Suspect]
     Active Substance: DERMATOPHAGOIDES FARINAE
     Dosage: 10,000 AU/ML
     Route: 003
     Dates: start: 20220323
  40. DERMATOPHAGOIDES PTERONYSSINUS [Suspect]
     Active Substance: DERMATOPHAGOIDES PTERONYSSINUS
     Indication: Skin test
     Dosage: UNK
     Route: 023
     Dates: start: 20220323
  41. DERMATOPHAGOIDES PTERONYSSINUS [Suspect]
     Active Substance: DERMATOPHAGOIDES PTERONYSSINUS
     Dosage: 10,000 AU/ML
     Route: 003
     Dates: start: 20220323
  42. PERIPLANETA AMERICANA [Suspect]
     Active Substance: PERIPLANETA AMERICANA
     Indication: Skin test
     Dosage: UNK
     Route: 023
     Dates: start: 20220323
  43. PERIPLANETA AMERICANA [Suspect]
     Active Substance: PERIPLANETA AMERICANA
     Dosage: 1:20 WEIGHT/VOLUME
     Route: 003
     Dates: start: 20220323
  44. FELIS CATUS HAIR [Suspect]
     Active Substance: FELIS CATUS HAIR
     Indication: Skin test
     Dosage: UNK
     Route: 023
     Dates: start: 20220323
  45. FELIS CATUS HAIR [Suspect]
     Active Substance: FELIS CATUS HAIR
     Dosage: 10,000 BAU/ML
     Route: 003
     Dates: start: 20220323
  46. ASPERGILLUS FUMIGATUS [Suspect]
     Active Substance: ASPERGILLUS FUMIGATUS
     Indication: Skin test
     Dosage: UNK
     Route: 023
     Dates: start: 20220323
  47. ASPERGILLUS FUMIGATUS [Suspect]
     Active Substance: ASPERGILLUS FUMIGATUS
     Dosage: 1:20
     Route: 003
     Dates: start: 20220323
  48. CLADOSPORIUM CLADOSPORIOIDES [Suspect]
     Active Substance: CLADOSPORIUM CLADOSPORIOIDES
     Indication: Skin test
     Dosage: UNK
     Route: 023
     Dates: start: 20220323
  49. CLADOSPORIUM CLADOSPORIOIDES [Suspect]
     Active Substance: CLADOSPORIUM CLADOSPORIOIDES
     Dosage: 1:20 WEIGHT/VOLUME
     Route: 003
     Dates: start: 20220323
  50. PENICILLIUM NOTATUM [Suspect]
     Active Substance: PENICILLIUM CHRYSOGENUM VAR. CHRYSOGENUM
     Indication: Skin test
     Dosage: UNK
     Route: 023
     Dates: start: 20220323
  51. PENICILLIUM NOTATUM [Suspect]
     Active Substance: PENICILLIUM CHRYSOGENUM VAR. CHRYSOGENUM
     Dosage: 1:20 WEIGHT/VOLUME, PERCUTANEOUS
     Dates: start: 20220323
  52. PINUS STROBUS POLLEN [Suspect]
     Active Substance: PINUS STROBUS POLLEN
     Indication: Skin test
     Dosage: 1:20 WEIGHT/VOLUME, PERCUTANEOUS
     Route: 003
     Dates: start: 20220323
  53. CANIS LUPUS FAMILIARIS SKIN [Suspect]
     Active Substance: CANIS LUPUS FAMILIARIS SKIN
     Indication: Skin test
     Dosage: 1:20 WEIGHT/VOLUME, PERCUTANEOUS
     Route: 003
     Dates: start: 20220323
  54. MUS MUSCULUS SKIN [Suspect]
     Active Substance: MUS MUSCULUS SKIN
     Indication: Skin test
     Dosage: 1:20 WEIGHT/VOLUME, PERCUTANEOUS
     Route: 003
     Dates: start: 20220323
  55. ANAS PLATYRHYNCHOS FEATHER\ANSER ANSER FEATHER\GALLUS GALLUS FEATHER [Suspect]
     Active Substance: ANAS PLATYRHYNCHOS FEATHER\ANSER ANSER FEATHER\GALLUS GALLUS FEATHER
     Indication: Skin test
     Dosage: 1:20 WIGHT/VOLUME, PERCUTANEOUS
     Route: 003
     Dates: start: 20220323
  56. STERILE DILUENT FOR ALLERGENIC EXTRACT NOS [Suspect]
     Active Substance: ALBUMIN HUMAN OR GLYCERIN OR PHENOL
     Indication: Diagnostic procedure
     Dosage: UNK
     Route: 003
     Dates: start: 20220323
  57. STERILE DILUENT FOR ALLERGENIC EXTRACT NOS [Suspect]
     Active Substance: ALBUMIN HUMAN OR GLYCERIN OR PHENOL
     Dosage: UNK
     Route: 023
     Dates: start: 20220323
  58. ALTERNARIA ALTERNATA [Suspect]
     Active Substance: ALTERNARIA ALTERNATA
     Indication: Skin test
     Dosage: PERCUTANEOUS
     Dates: start: 20220323

REACTIONS (3)
  - Anaphylactic reaction [Unknown]
  - Skin test positive [Recovered/Resolved]
  - False negative investigation result [Unknown]

NARRATIVE: CASE EVENT DATE: 20220323
